FAERS Safety Report 8031223-0 (Version None)
Quarter: 2012Q1

REPORT INFORMATION
  Report Type: 
  Country: None (occurrence: None)
  Receive Date: 20120109
  Receipt Date: 20120104
  Transmission Date: 20120608
  Serious: Yes (Hospitalization)
  Sender: FDA-Public Use
  Company Number: FR-ABBOTT-12P-056-0889584-00

PATIENT
  Sex: Female

DRUGS (5)
  1. ASPIRIN [Concomitant]
     Indication: CIRCULATING ANTICOAGULANT
     Route: 048
     Dates: start: 20110301, end: 20111001
  2. PREDNISONE TAB [Concomitant]
     Indication: CROHN'S DISEASE
  3. HUMIRA [Suspect]
     Indication: CROHN'S DISEASE
     Route: 058
     Dates: start: 20091201, end: 20110301
  4. HUMIRA [Suspect]
     Indication: LUPUS-LIKE SYNDROME
  5. PREDNISONE TAB [Concomitant]
     Indication: SYSTEMIC LUPUS ERYTHEMATOSUS
     Route: 048
     Dates: start: 20110301, end: 20111001

REACTIONS (2)
  - GESTATIONAL HYPERTENSION [None]
  - LUPUS-LIKE SYNDROME [None]
